FAERS Safety Report 16984540 (Version 1)
Quarter: 2019Q4

REPORT INFORMATION
  Report Type: Spontaneous
  Country: US (occurrence: US)
  Receive Date: 20191101
  Receipt Date: 20191101
  Transmission Date: 20200122
  Serious: Yes (Life-Threatening, Hospitalization, Other)
  Sender: FDA-Public Use
  Company Number: US-JNJFOC-20191037290

PATIENT
  Age: 31 Year
  Sex: Male

DRUGS (1)
  1. FENTANYL. [Suspect]
     Active Substance: FENTANYL
     Indication: PRODUCT USED FOR UNKNOWN INDICATION
     Route: 045

REACTIONS (4)
  - Pulmonary alveolar haemorrhage [Recovering/Resolving]
  - Pneumonia aspiration [Recovering/Resolving]
  - Off label use [Unknown]
  - Incorrect route of product administration [Unknown]
